FAERS Safety Report 6097463-5 (Version None)
Quarter: 2009Q1

REPORT INFORMATION
  Report Type: 
  Country: None (occurrence: None)
  Receive Date: 20090227
  Receipt Date: 20080707
  Transmission Date: 20090719
  Serious: No
  Sender: FDA-Public Use
  Company Number: A0736264A

PATIENT
  Age: 36 Year
  Sex: Female

DRUGS (8)
  1. IMITREX [Suspect]
     Indication: HEADACHE
     Route: 065
  2. LAMICTAL [Suspect]
     Indication: DRUG USE FOR UNKNOWN INDICATION
     Dosage: 100MG PER DAY
     Route: 048
  3. PROZAC [Concomitant]
  4. PANTOPRAZOLE [Concomitant]
  5. ATIVAN [Concomitant]
     Route: 042
  6. XANAX [Concomitant]
  7. TRINESSA [Concomitant]
  8. TRAZODONE HCL [Concomitant]

REACTIONS (5)
  - DRUG INEFFECTIVE [None]
  - HEADACHE [None]
  - HYPERVENTILATION [None]
  - NAUSEA [None]
  - PHOTOPHOBIA [None]
